FAERS Safety Report 10870492 (Version 1)
Quarter: 2015Q1

REPORT INFORMATION
  Report Type: Spontaneous
  Country: US (occurrence: US)
  Receive Date: 20150226
  Receipt Date: 20150226
  Transmission Date: 20150721
  Serious: No
  Sender: FDA-Public Use
  Company Number: US-TEVA-477836USA

PATIENT
  Age: 71 Year
  Sex: Male

DRUGS (1)
  1. AMPHETAMINE W/DEXTROAMPHETAMINE [Suspect]
     Active Substance: AMPHETAMINE SULFATE\DEXTROAMPHETAMINE
     Dosage: 2-3 TIMES/DAY
     Dates: end: 201308

REACTIONS (2)
  - Dyskinesia [Unknown]
  - Jaw disorder [Unknown]

NARRATIVE: CASE EVENT DATE: 201308
